FAERS Safety Report 14623093 (Version 1)
Quarter: 2018Q1

REPORT INFORMATION
  Report Type: Spontaneous
  Country: US (occurrence: US)
  Receive Date: 20180311
  Receipt Date: 20180311
  Transmission Date: 20180509
  Serious: Yes (Death, Hospitalization)
  Sender: FDA-Public Use
  Company Number: PHHY2018US040059

PATIENT
  Age: 80 Year
  Sex: Female

DRUGS (1)
  1. ANASTROZOLE. [Suspect]
     Active Substance: ANASTROZOLE
     Indication: INVASIVE DUCTAL BREAST CARCINOMA
     Dosage: UNK
     Route: 065

REACTIONS (7)
  - Fatigue [Unknown]
  - Ascites [Fatal]
  - Multiple organ dysfunction syndrome [Fatal]
  - Mental status changes [Unknown]
  - Abdominal pain [Unknown]
  - Acute hepatic failure [Fatal]
  - Hepatic function abnormal [Fatal]
